FAERS Safety Report 16493911 (Version 1)
Quarter: 2019Q2

REPORT INFORMATION
  Report Type: Spontaneous
  Country: AU (occurrence: AU)
  Receive Date: 20190628
  Receipt Date: 20190628
  Transmission Date: 20190711
  Serious: Yes (Other)
  Sender: FDA-Public Use
  Company Number: AU-SAOL THERAPEUTICS-2019SAO00249

PATIENT
  Age: 54 Year
  Sex: Female

DRUGS (1)
  1. BACLOFEN. [Suspect]
     Active Substance: BACLOFEN
     Dosage: 95 MG, 1X/DAY (^50/20/25 MG DAILY^)
     Route: 048

REACTIONS (2)
  - Myoclonus [Recovered/Resolved]
  - Toxic encephalopathy [Recovered/Resolved]
